FAERS Safety Report 7814860-5 (Version None)
Quarter: 2011Q4

REPORT INFORMATION
  Report Type: 
  Country: None (occurrence: None)
  Receive Date: 20111014
  Receipt Date: 20110930
  Transmission Date: 20120403
  Serious: Yes (Disabling)
  Sender: FDA-Public Use
  Company Number: US-ROCHE-798619

PATIENT
  Sex: Male
  Weight: 112.6 kg

DRUGS (5)
  1. POVIDONE IODINE [Concomitant]
     Dosage: DRUG REPORTED AS: POVIDONE-IODINE 5%
  2. OFLOXACIN OPHTHALMIC SOLUTION [Concomitant]
     Dosage: DRUG REPORTED AS: OFLOXACIN 0.3 % OPHTH
  3. PROPARACAINE HCL [Concomitant]
  4. LIDOCAINE [Concomitant]
     Dosage: DRUG REPORTED AS: LIDOCAINE 1% W/ EPI
  5. AVASTIN [Suspect]
     Indication: MACULAR OEDEMA
     Dosage: DOSE: REPORTED AS 1.25 MG EVERY 4-6 WEEKS.
     Route: 050
     Dates: start: 20110812, end: 20110815

REACTIONS (4)
  - EYE INFLAMMATION [None]
  - EYE PAIN [None]
  - BLINDNESS [None]
  - PRODUCT QUALITY ISSUE [None]
